FAERS Safety Report 5766985-6 (Version None)
Quarter: 2008Q2

REPORT INFORMATION
  Report Type: 
  Country: None (occurrence: None)
  Receive Date: 20080612
  Receipt Date: 20080602
  Transmission Date: 20081010
  Serious: Yes (Hospitalization, Other)
  Sender: FDA-Public Use
  Company Number: US-JNJFOC-20080207013

PATIENT
  Sex: Female
  Weight: 54.43 kg

DRUGS (22)
  1. DURAGESIC-100 [Suspect]
     Route: 062
  2. DURAGESIC-100 [Suspect]
     Indication: BACK PAIN
     Route: 062
  3. DURAGESIC-100 [Suspect]
     Indication: SPINAL COLUMN STENOSIS
     Route: 062
  4. LASIX [Concomitant]
     Indication: CARDIAC FAILURE CONGESTIVE
     Route: 048
  5. GLUCOTROL [Concomitant]
     Indication: TYPE 2 DIABETES MELLITUS
     Route: 048
  6. PROTONIX [Concomitant]
     Indication: HYPERCHLORHYDRIA
     Route: 048
  7. METOPROLOL [Concomitant]
     Indication: BLOOD PRESSURE
     Route: 048
  8. CALCIUM D [Concomitant]
     Indication: BONE DISORDER
     Route: 048
  9. DIGOXIN [Concomitant]
     Indication: HEART RATE
     Dosage: MONDAY, WEDNESDAY AND FRIDAY
     Route: 048
  10. DIOVAN [Concomitant]
     Indication: BLOOD PRESSURE
     Route: 048
  11. LIPITOR [Concomitant]
     Indication: BLOOD CHOLESTEROL
     Route: 048
  12. LOPID [Concomitant]
     Indication: BLOOD CHOLESTEROL
     Route: 048
  13. PREDNISONE TAB [Concomitant]
     Indication: GOUT
     Route: 048
  14. PREDNISONE TAB [Concomitant]
     Indication: CHRONIC OBSTRUCTIVE PULMONARY DISEASE
     Route: 048
  15. KDUR [Concomitant]
     Indication: MINERAL SUPPLEMENTATION
     Route: 048
  16. ALLOPURINOL [Concomitant]
     Indication: GOUT
     Dosage: 2X 100MG
     Route: 048
  17. FOLIC ACID [Concomitant]
     Route: 048
  18. ULTRACET [Concomitant]
     Indication: BACK PAIN
     Dosage: 2X 37.5MG
     Route: 048
  19. XOPENEX NEBULIZER [Concomitant]
     Indication: CHRONIC OBSTRUCTIVE PULMONARY DISEASE
     Route: 055
  20. LIDODERM [Concomitant]
     Indication: BACK PAIN
     Route: 062
  21. PROCRIT [Concomitant]
     Indication: ANAEMIA
     Dosage: 40,000 UNITS
     Route: 058
  22. VITAMIN B-12 [Concomitant]
     Indication: ANAEMIA
     Route: 065

REACTIONS (11)
  - DIZZINESS [None]
  - DRUG PRESCRIBING ERROR [None]
  - FALL [None]
  - HEART RATE DECREASED [None]
  - LARGE INTESTINE PERFORATION [None]
  - PAIN [None]
  - PHARMACEUTICAL PRODUCT COMPLAINT [None]
  - RIB FRACTURE [None]
  - ROTATOR CUFF SYNDROME [None]
  - SOMNOLENCE [None]
  - WITHDRAWAL SYNDROME [None]
